FAERS Safety Report 16416220 (Version 1)
Quarter: 2019Q2

REPORT INFORMATION
  Report Type: Spontaneous
  Country: IL (occurrence: IL)
  Receive Date: 20190611
  Receipt Date: 20190611
  Transmission Date: 20190711
  Serious: Yes (Death, Hospitalization)
  Sender: FDA-Public Use
  Company Number: IL-BAUSCH-BL-2019-016634

PATIENT
  Age: 65 Year
  Sex: Female

DRUGS (3)
  1. D-PENICILLAMINE [Suspect]
     Active Substance: PENICILLAMINE
     Indication: RHEUMATOID ARTHRITIS
     Dosage: FOR FIVE WEEKS.
     Route: 065
  2. D-PENICILLAMINE [Suspect]
     Active Substance: PENICILLAMINE
     Indication: POLYARTHRITIS
     Dosage: INCREASED
     Route: 065
  3. PARACETAMOL PLUS PROPOXYPHENE [Concomitant]
     Indication: PRODUCT USED FOR UNKNOWN INDICATION

REACTIONS (2)
  - Drug-induced liver injury [Fatal]
  - Aplastic anaemia [Fatal]
